FAERS Safety Report 18901830 (Version 1)
Quarter: 2021Q1

REPORT INFORMATION
  Report Type: Spontaneous
  Country: IL (occurrence: IL)
  Receive Date: 20210216
  Receipt Date: 20210216
  Transmission Date: 20210420
  Serious: Yes (Other)
  Sender: FDA-Public Use
  Company Number: NVSC2021IL036161

PATIENT
  Age: 46 Year
  Sex: Female

DRUGS (1)
  1. RITALIN [Suspect]
     Active Substance: METHYLPHENIDATE HYDROCHLORIDE
     Indication: ATTENTION DEFICIT HYPERACTIVITY DISORDER
     Dosage: UNK, FOR 1 YEAR
     Route: 055

REACTIONS (11)
  - Nasal crusting [Unknown]
  - Eyelid oedema [Unknown]
  - Conjunctival oedema [Recovered/Resolved]
  - Nasal septum ulceration [Unknown]
  - Otitis media [Unknown]
  - Nasal septum perforation [Unknown]
  - Intentional product misuse [Unknown]
  - Exophthalmos [Recovered/Resolved]
  - Ophthalmoplegia [Recovered/Resolved]
  - Strabismus [Unknown]
  - Nasal necrosis [Unknown]
